FAERS Safety Report 7257218-2 (Version None)
Quarter: 2011Q1

REPORT INFORMATION
  Report Type: 
  Country: None (occurrence: None)
  Receive Date: 20110129
  Receipt Date: 20100716
  Transmission Date: 20110831
  Serious: No
  Sender: FDA-Public Use
  Company Number: US-ABBOTT-10P-163-0658664-00

PATIENT
  Sex: Female
  Weight: 81.72 kg

DRUGS (9)
  1. LORAZEPAM [Concomitant]
     Indication: FEELING JITTERY
  2. HUMIRA [Suspect]
     Indication: CROHN'S DISEASE
     Dates: start: 20090901, end: 20100101
  3. APRISO [Concomitant]
     Indication: COLITIS ULCERATIVE
  4. APRISO [Concomitant]
     Indication: CROHN'S DISEASE
  5. CIPRO [Concomitant]
     Indication: POUCHITIS
  6. METHOTREXATE [Suspect]
     Indication: LARGE INTESTINAL ULCER HAEMORRHAGE
  7. CANASA [Concomitant]
     Indication: PAIN
  8. CELEBREX [Suspect]
     Indication: LARGE INTESTINAL ULCER HAEMORRHAGE
  9. HUMIRA [Suspect]
     Indication: PSORIATIC ARTHROPATHY
     Dates: start: 20100713

REACTIONS (5)
  - LARGE INTESTINAL ULCER HAEMORRHAGE [None]
  - ARTHRITIS [None]
  - INFECTION [None]
  - NASOPHARYNGITIS [None]
  - INFLUENZA [None]
